FAERS Safety Report 12581119 (Version 1)
Quarter: 2016Q3

REPORT INFORMATION
  Report Type: Spontaneous
  Country: US (occurrence: US)
  Receive Date: 20160721
  Receipt Date: 20160721
  Transmission Date: 20161109
  Serious: No
  Sender: FDA-Public Use
  Company Number: US-GLAXOSMITHKLINE-US2016098040

PATIENT
  Age: 62 Year
  Sex: Male

DRUGS (9)
  1. LAMOTRIGINE TABLET [Suspect]
     Active Substance: LAMOTRIGINE
     Dosage: 25 MG, BID
     Dates: start: 20160617, end: 20160623
  2. CLONAZEPAM. [Concomitant]
     Active Substance: CLONAZEPAM
  3. LAMOTRIGINE TABLET [Suspect]
     Active Substance: LAMOTRIGINE
     Indication: BIPOLAR DISORDER
     Dosage: 25 MG, QD
     Dates: start: 20160610, end: 20160616
  4. LAMOTRIGINE TABLET [Suspect]
     Active Substance: LAMOTRIGINE
     Dosage: 25 MG, TID
     Dates: start: 20160624
  5. ATORVASTATIN [Concomitant]
     Active Substance: ATORVASTATIN
  6. LAMOTRIGINE TABLET [Suspect]
     Active Substance: LAMOTRIGINE
     Dosage: 100 MG, QD
  7. LEVOTHYROXINE. [Concomitant]
     Active Substance: LEVOTHYROXINE
  8. METOPROLOL. [Concomitant]
     Active Substance: METOPROLOL
     Dosage: UNK
  9. LISINOPRIL. [Concomitant]
     Active Substance: LISINOPRIL

REACTIONS (2)
  - Abnormal dreams [Not Recovered/Not Resolved]
  - Sleep talking [Unknown]

NARRATIVE: CASE EVENT DATE: 20160610
